FAERS Safety Report 21727608 (Version 2)
Quarter: 2024Q1

REPORT INFORMATION
  Report Type: Spontaneous
  Country: US (occurrence: US)
  Receive Date: 20221214
  Receipt Date: 20240206
  Transmission Date: 20240410
  Serious: Yes (Other)
  Sender: FDA-Public Use
  Company Number: US-PFIZER INC-202201363144

PATIENT
  Age: 67 Year
  Sex: Female
  Weight: 117.46 kg

DRUGS (1)
  1. IBRANCE [Suspect]
     Active Substance: PALBOCICLIB
     Indication: Breast cancer metastatic
     Dosage: 125 MG ONCE DAILY FOR 21 DAYS 7 OFF THEN START OVER

REACTIONS (9)
  - Neuropathy peripheral [Not Recovered/Not Resolved]
  - Intervertebral disc degeneration [Not Recovered/Not Resolved]
  - Renal disorder [Not Recovered/Not Resolved]
  - Dysstasia [Unknown]
  - Gait inability [Unknown]
  - Pain [Unknown]
  - Dyspnoea [Not Recovered/Not Resolved]
  - Hypoacusis [Unknown]
  - Dry skin [Not Recovered/Not Resolved]

NARRATIVE: CASE EVENT DATE: 20210101
